FAERS Safety Report 5732101-X (Version None)
Quarter: 2008Q2

REPORT INFORMATION
  Report Type: 
  Country: None (occurrence: None)
  Receive Date: 20080506
  Receipt Date: 20080423
  Transmission Date: 20081010
  Serious: Yes (Hospitalization)
  Sender: FDA-Public Use
  Company Number: GB-LLY-GBS980901528

PATIENT
  Age: 77 Year
  Sex: Male
  Weight: 62 kg

DRUGS (1)
  1. PERGOLIDE MESYLATE [Suspect]
     Indication: PARKINSONISM
     Dosage: 3 MG; QD; PO
     Route: 048
     Dates: start: 19950101, end: 19980101

REACTIONS (5)
  - AORTIC VALVE INCOMPETENCE [None]
  - CARDIAC FAILURE [None]
  - MITRAL VALVE INCOMPETENCE [None]
  - OEDEMA [None]
  - TRICUSPID VALVE INCOMPETENCE [None]
